FAERS Safety Report 5712295-2 (Version None)
Quarter: 2008Q2

REPORT INFORMATION
  Report Type: 
  Country: None (occurrence: None)
  Receive Date: 20080421
  Receipt Date: 20080421
  Transmission Date: 20081010
  Serious: Yes (Life-Threatening, Other)
  Sender: FDA-Public Use
  Company Number: None

PATIENT
  Age: 50 Year
  Sex: Female
  Weight: 56.6996 kg

DRUGS (3)
  1. TOFRANIL-PM [Suspect]
     Indication: DEPRESSION
     Dosage: UROGESIC BLUE QID PO
     Route: 048
     Dates: start: 20080201, end: 20080415
  2. TOFRANIL-PM [Suspect]
     Indication: MIGRAINE
     Dosage: UROGESIC BLUE QID PO
     Route: 048
     Dates: start: 20080201, end: 20080415
  3. CELEXA [Suspect]
     Indication: URINARY TRACT INFECTION
     Dosage: CRANDBERRY TS BID PO
     Route: 048
     Dates: start: 20080201, end: 20080415

REACTIONS (4)
  - DRUG INTERACTION [None]
  - HYPERTENSION [None]
  - PHARMACEUTICAL PRODUCT COMPLAINT [None]
  - SEROTONIN SYNDROME [None]
